FAERS Safety Report 9419030 (Version 1)
Quarter: 2013Q3

REPORT INFORMATION
  Report Type: Report from Study
  Country: CA (occurrence: CA)
  Receive Date: 20130725
  Receipt Date: 20130725
  Transmission Date: 20140515
  Serious: Yes (Death)
  Sender: FDA-Public Use
  Company Number: PHHY2012CA123242

PATIENT
  Age: 62 Year
  Sex: Male
  Weight: 52.15 kg

DRUGS (3)
  1. SANDOSTATIN LAR [Suspect]
     Indication: COLON CANCER METASTATIC
     Dosage: 20 MG, EVERY 4 WEEKS
     Route: 030
     Dates: start: 20121121
  2. SANDOSTATIN LAR [Suspect]
     Dosage: 30 MG, EVERY 4 WEEKS
     Route: 030
  3. SANDOSTATIN LAR [Suspect]
     Dosage: 40 MG, EVERY 4 WEEKS
     Route: 030
     Dates: end: 20130605

REACTIONS (5)
  - Death [Fatal]
  - Blood pressure increased [Unknown]
  - Weight decreased [Unknown]
  - Diarrhoea [Unknown]
  - Heart rate increased [Unknown]
